FAERS Safety Report 8539937-0 (Version None)
Quarter: 2012Q3

REPORT INFORMATION
  Report Type: 
  Country: None (occurrence: None)
  Receive Date: 20120726
  Receipt Date: 20120723
  Transmission Date: 20120928
  Serious: Yes (Other)
  Sender: FDA-Public Use
  Company Number: US-PFIZER INC-2012150059

PATIENT
  Sex: Female
  Weight: 73 kg

DRUGS (5)
  1. INSULIN [Concomitant]
     Indication: DIABETES MELLITUS
     Dosage: UNK, 2X/DAY
  2. LIPITOR [Suspect]
     Indication: BLOOD CHOLESTEROL ABNORMAL
     Dosage: 10 MG, 1X/DAY
     Route: 048
  3. ACCUPRIL [Concomitant]
     Dosage: UNK, 1X/DAY
  4. IMDUR [Concomitant]
     Dosage: UNK
  5. NORVASC [Concomitant]
     Dosage: UNK, 1X/DAY

REACTIONS (1)
  - GINGIVAL INFECTION [None]
